FAERS Safety Report 6770661-0 (Version None)
Quarter: 2010Q2

REPORT INFORMATION
  Report Type: 
  Country: None (occurrence: None)
  Receive Date: 20100615
  Receipt Date: 20100527
  Transmission Date: 20101027
  Serious: Yes (Other)
  Sender: FDA-Public Use
  Company Number: DK-GENENTECH-299661

PATIENT
  Sex: Female

DRUGS (4)
  1. LUCENTIS [Suspect]
     Indication: CHOROIDAL NEOVASCULARISATION
     Dosage: 0.5 MG, UNK
     Route: 031
     Dates: start: 20070731
  2. LUCENTIS [Suspect]
     Dosage: 0.5 MG, Q6W
     Route: 031
  3. VALSARTAN [Concomitant]
     Indication: DRUG USE FOR UNKNOWN INDICATION
  4. DIOVAN [Concomitant]
     Indication: DRUG USE FOR UNKNOWN INDICATION
     Dosage: 80 MG, UNK

REACTIONS (3)
  - CHORIORETINAL ATROPHY [None]
  - RETINAL NEOVASCULARISATION [None]
  - SUBRETINAL FIBROSIS [None]
